FAERS Safety Report 8077309-6 (Version None)
Quarter: 2012Q1

REPORT INFORMATION
  Report Type: 
  Country: None (occurrence: None)
  Receive Date: 20120126
  Receipt Date: 20120126
  Transmission Date: 20120608
  Serious: Yes (Hospitalization)
  Sender: FDA-Public Use
  Company Number: None

PATIENT
  Sex: Female
  Weight: 60.54 kg

DRUGS (7)
  1. TAXOL [Suspect]
     Dosage: 581 MG
     Dates: end: 20101216
  2. PHENERGAN [Concomitant]
  3. CARBOPLATIN [Suspect]
     Dosage: 1049 MG
     Dates: end: 20101216
  4. NEULASTA [Concomitant]
  5. ERBITUX [Suspect]
     Dosage: 1570 MG
     Dates: end: 20101230
  6. ATIVAN [Concomitant]
  7. DEXAMETHASONE [Concomitant]

REACTIONS (12)
  - ASTHENIA [None]
  - MALAISE [None]
  - VOMITING [None]
  - DIARRHOEA [None]
  - NAUSEA [None]
  - HYPOCALCAEMIA [None]
  - CYTOMEGALOVIRUS INFECTION [None]
  - WHITE BLOOD CELL COUNT INCREASED [None]
  - WHITE BLOOD CELL COUNT DECREASED [None]
  - FEBRILE NEUTROPENIA [None]
  - BLOOD BILIRUBIN INCREASED [None]
  - ASPARTATE AMINOTRANSFERASE INCREASED [None]
